FAERS Safety Report 8391567-X (Version None)
Quarter: 2012Q2

REPORT INFORMATION
  Report Type: 
  Country: None (occurrence: None)
  Receive Date: 20120529
  Receipt Date: 20120522
  Transmission Date: 20120825
  Serious: No
  Sender: FDA-Public Use
  Company Number: BR-PFIZER INC-2012114438

PATIENT
  Age: 75 Year
  Sex: Male
  Weight: 74 kg

DRUGS (4)
  1. PANTOPRAZOLE [Suspect]
     Indication: GASTROOESOPHAGEAL REFLUX DISEASE
     Dosage: 40 MG, 2 TABLETS DAILY
     Route: 048
     Dates: start: 20120319
  2. PANTOPRAZOLE [Suspect]
  3. AMLODIPINE BESILATE [Concomitant]
     Indication: HYPERTENSION
     Dosage: 2 DOSAGE FORMS DAILY
     Route: 048
     Dates: start: 20070101
  4. ENALAPRIL MALEATE [Concomitant]
     Indication: HYPERTENSION
     Dosage: 20 MG, 1X/DAY AT NIGHT
     Route: 048
     Dates: start: 20070101

REACTIONS (1)
  - TINNITUS [None]
